FAERS Safety Report 4902308-X (Version None)
Quarter: 2006Q1

REPORT INFORMATION
  Report Type: 
  Country: None (occurrence: None)
  Receive Date: 20060202
  Receipt Date: 20060202
  Transmission Date: 20060701
  Serious: Yes (Hospitalization, Other)
  Sender: FDA-Public Use
  Company Number: None

PATIENT
  Sex: Male
  Weight: 64.1 kg

DRUGS (7)
  1. LEUCOVORIN CALCIUM [Suspect]
     Indication: CENTRAL NERVOUS SYSTEM LYMPHOMA
     Dosage: 1560 MG
     Route: 042
     Dates: start: 20060111, end: 20060115
  2. LEUCOVORIN CALCIUM [Suspect]
     Indication: CENTRAL NERVOUS SYSTEM LYMPHOMA
     Dosage: 1560 MG
     Route: 042
     Dates: start: 20060110
  3. METHOTREXATE [Suspect]
     Dosage: 14000 MG
     Route: 042
     Dates: start: 20060110, end: 20060110
  4. RITUXIMAB [Suspect]
     Dosage: 1968 MG
     Route: 042
     Dates: start: 20060112, end: 20060125
  5. RITUXIMAB [Suspect]
     Dosage: 1968 MG
     Route: 042
     Dates: start: 20060110
  6. TEMOZOLOMIDE [Suspect]
     Dosage: 1300 MG
     Route: 048
     Dates: start: 20060116, end: 20060120
  7. TEMOZOLOMIDE [Suspect]
     Dosage: 1300 MG
     Route: 048
     Dates: start: 20060110

REACTIONS (3)
  - BLOOD LACTATE DEHYDROGENASE INCREASED [None]
  - LIVER DISORDER [None]
  - TRANSAMINASES INCREASED [None]
